FAERS Safety Report 7832259-2 (Version None)
Quarter: 2011Q4

REPORT INFORMATION
  Report Type: 
  Country: None (occurrence: None)
  Receive Date: 20111022
  Receipt Date: 20110930
  Transmission Date: 20120403
  Serious: Yes (Hospitalization)
  Sender: FDA-Public Use
  Company Number: US-BAYER-2011-027900

PATIENT
  Age: 35 Year
  Sex: Female
  Weight: 73.469 kg

DRUGS (2)
  1. YAZ [Suspect]
     Indication: ACNE
     Dosage: UNK
     Dates: start: 20090401, end: 20090801
  2. PERCOCET [Concomitant]
     Indication: CHEST DISCOMFORT

REACTIONS (8)
  - ANXIETY [None]
  - PULMONARY EMBOLISM [None]
  - PULMONARY INFARCTION [None]
  - GENERAL PHYSICAL HEALTH DETERIORATION [None]
  - PULMONARY FIBROSIS [None]
  - EMOTIONAL DISTRESS [None]
  - PAIN [None]
  - INJURY [None]
